FAERS Safety Report 8205684-8 (Version None)
Quarter: 2012Q1

REPORT INFORMATION
  Report Type: 
  Country: None (occurrence: None)
  Receive Date: 20120313
  Receipt Date: 20120228
  Transmission Date: 20120608
  Serious: Yes (Hospitalization)
  Sender: FDA-Public Use
  Company Number: US-JNJFOC-20120300328

PATIENT

DRUGS (6)
  1. BENADRYL [Concomitant]
     Indication: PREMEDICATION
     Route: 065
  2. COLAZAL [Concomitant]
     Route: 065
  3. PREDNISONE [Concomitant]
     Indication: PREMEDICATION
     Route: 065
  4. TYLENOL [Concomitant]
     Indication: PREMEDICATION
     Route: 065
  5. NAPROXEN [Concomitant]
     Route: 065
  6. REMICADE [Suspect]
     Indication: COLITIS ULCERATIVE
     Route: 042

REACTIONS (7)
  - INFUSION RELATED REACTION [None]
  - MYALGIA [None]
  - C-REACTIVE PROTEIN INCREASED [None]
  - EYE PRURITUS [None]
  - OCULAR HYPERAEMIA [None]
  - PRURITUS [None]
  - ARTHRALGIA [None]
